FAERS Safety Report 25813183 (Version 2)
Quarter: 2025Q3

REPORT INFORMATION
  Report Type: Spontaneous
  Country: US (occurrence: US)
  Receive Date: 20250917
  Receipt Date: 20250923
  Transmission Date: 20251021
  Serious: Yes (Death)
  Sender: PFIZER
  Company Number: US-PFIZER INC-202500183125

PATIENT
  Age: 77 Year
  Sex: Male
  Weight: 92.53 kg

DRUGS (1)
  1. VYNDAQEL [Suspect]
     Active Substance: TAFAMIDIS MEGLUMINE
     Indication: Arteriosclerosis
     Dosage: 20 MG, 4X/DAYEACH MORNING BEFORE BREAKFAST
     Route: 048

REACTIONS (1)
  - Death [Fatal]

NARRATIVE: CASE EVENT DATE: 20250903
